FAERS Safety Report 5910454-7 (Version None)
Quarter: 2008Q4

REPORT INFORMATION
  Report Type: 
  Country: None (occurrence: None)
  Receive Date: 20081007
  Receipt Date: 20081003
  Transmission Date: 20090506
  Serious: Yes (Other)
  Sender: FDA-Public Use
  Company Number: US-ASTRAZENECA-2007UW06146

PATIENT
  Age: 38 Year
  Sex: Female
  Weight: 167.8 kg

DRUGS (4)
  1. SEROQUEL [Suspect]
     Indication: BIPOLAR DISORDER
     Route: 048
     Dates: start: 20020521, end: 20050101
  2. ADIPEX [Concomitant]
     Dates: start: 19910101, end: 19960101
  3. ELAVIL [Concomitant]
     Dates: start: 20051101, end: 20080701
  4. CYMBALTA [Concomitant]
     Dates: start: 20060101

REACTIONS (4)
  - HERNIA REPAIR [None]
  - NEUROPATHY PERIPHERAL [None]
  - RHEUMATOID ARTHRITIS [None]
  - TYPE 2 DIABETES MELLITUS [None]
